FAERS Safety Report 6091374-7 (Version None)
Quarter: 2009Q1

REPORT INFORMATION
  Report Type: 
  Country: None (occurrence: None)
  Receive Date: 20090223
  Receipt Date: 20090210
  Transmission Date: 20090719
  Serious: Yes (Other)
  Sender: FDA-Public Use
  Company Number: 2009AP000554

PATIENT
  Age: 28 Year
  Sex: Female

DRUGS (1)
  1. LITHIUM CARBONATE [Suspect]
     Dosage: 600 MG; BID PO
     Route: 048

REACTIONS (2)
  - CONDITION AGGRAVATED [None]
  - DRUG LEVEL DECREASED [None]
